FAERS Safety Report 8461413-4 (Version None)
Quarter: 2012Q2

REPORT INFORMATION
  Report Type: 
  Country: None (occurrence: None)
  Receive Date: 20120625
  Receipt Date: 20120530
  Transmission Date: 20120825
  Serious: No
  Sender: FDA-Public Use
  Company Number: US-JNJFOC-20120600773

PATIENT
  Sex: Male

DRUGS (5)
  1. CELEXA [Concomitant]
     Route: 048
  2. INVEGA SUSTENNA [Suspect]
     Indication: PRODUCT USED FOR UNKNOWN INDICATION
     Route: 030
     Dates: start: 20111101
  3. COGENTIN [Concomitant]
     Route: 048
  4. VISTARIL [Concomitant]
     Route: 048
  5. INVEGA [Concomitant]
     Route: 048

REACTIONS (4)
  - HEADACHE [None]
  - EYE PAIN [None]
  - PARAESTHESIA [None]
  - INAPPROPRIATE SCHEDULE OF DRUG ADMINISTRATION [None]
